FAERS Safety Report 10152890 (Version 1)
Quarter: 2014Q2

REPORT INFORMATION
  Report Type: Spontaneous
  Country: US (occurrence: US)
  Receive Date: 20140505
  Receipt Date: 20140505
  Transmission Date: 20141212
  Serious: Yes (Hospitalization, Other)
  Sender: FDA-Public Use
  Company Number: US-GLAXOSMITHKLINE-A1068108A

PATIENT
  Age: 66 Year
  Sex: Male
  Weight: 85 kg

DRUGS (26)
  1. VOTRIENT [Suspect]
     Indication: RENAL CELL CARCINOMA
     Dosage: 800MG PER DAY
     Route: 065
     Dates: start: 20140206, end: 20140315
  2. METFORMIN [Suspect]
     Indication: PRODUCT USED FOR UNKNOWN INDICATION
     Route: 065
  3. ALLOPURINOL [Concomitant]
  4. AMLODIPINE BESYLATE [Concomitant]
  5. BENAZEPRIL HYDROCHLORIDE [Concomitant]
  6. ASPIRIN [Concomitant]
  7. ATENOLOL [Concomitant]
  8. FISH OIL [Concomitant]
  9. KOMBIGLYZE XR [Concomitant]
  10. OMEPRAZOLE [Concomitant]
  11. PREDNISONE [Concomitant]
  12. VITAMIN D [Concomitant]
  13. VYTORIN [Concomitant]
  14. DEPAKOTE [Concomitant]
  15. LOTENSIN [Concomitant]
  16. NORVASC [Concomitant]
  17. HYDRALAZINE [Concomitant]
  18. DEXAMETHASONE [Concomitant]
  19. ACYCLOVIR [Concomitant]
  20. HEPARIN [Concomitant]
  21. ALBUTEROL [Concomitant]
  22. TYLENOL [Concomitant]
  23. ZOFRAN [Concomitant]
  24. CEFEPIME [Concomitant]
  25. AMPICILLIN [Concomitant]
  26. VALPROIC ACID [Concomitant]

REACTIONS (15)
  - Hypertension [Recovered/Resolved]
  - Mental status changes [Recovered/Resolved]
  - Hypertensive encephalopathy [Recovered/Resolved]
  - Vomiting [Recovered/Resolved]
  - Headache [Recovered/Resolved]
  - Confusional state [Recovered/Resolved]
  - Agitation [Recovered/Resolved]
  - Hemiparesis [Recovered/Resolved]
  - Feeling abnormal [Recovering/Resolving]
  - Systemic inflammatory response syndrome [Recovered/Resolved]
  - Lactic acidosis [Recovered/Resolved]
  - Aphasia [Recovered/Resolved]
  - Flushing [Recovered/Resolved]
  - Fatigue [Recovered/Resolved]
  - Delirium [Recovered/Resolved]
